FAERS Safety Report 7569884-2 (Version None)
Quarter: 2011Q2

REPORT INFORMATION
  Report Type: 
  Country: None (occurrence: None)
  Receive Date: 20110622
  Receipt Date: 20110622
  Transmission Date: 20111010
  Serious: Yes (Other)
  Sender: FDA-Public Use
  Company Number: None

PATIENT
  Sex: Female

DRUGS (1)
  1. IMITREX [Suspect]
     Indication: MIGRAINE
     Dosage: HALF A TROCHE ONCE PO
     Route: 048
     Dates: start: 19970109, end: 19970109

REACTIONS (5)
  - DEHYDRATION [None]
  - MIGRAINE [None]
  - CONDITION AGGRAVATED [None]
  - NO THERAPEUTIC RESPONSE [None]
  - VOMITING [None]
